FAERS Safety Report 4963868-6 (Version None)
Quarter: 2006Q1

REPORT INFORMATION
  Report Type: 
  Country: None (occurrence: None)
  Receive Date: 20060330
  Receipt Date: 20060323
  Transmission Date: 20060701
  Serious: Yes (Hospitalization, Other)
  Sender: FDA-Public Use
  Company Number: 2006041032

PATIENT
  Age: 62 Year
  Sex: Female
  Weight: 70.3075 kg

DRUGS (9)
  1. LIPITOR [Suspect]
     Indication: BLOOD CHOLESTEROL INCREASED
     Dosage: 40 MG (40 MG, 1 IN 1 D)
  2. ATENOLOL [Concomitant]
  3. WARFARIN SODIUM [Concomitant]
  4. FIBERCON (POLYCARBOPHIL CALCIUM) [Concomitant]
  5. ASPIRIN [Concomitant]
  6. NITRO PATCH (GLYCERYL TRINITRATE) [Concomitant]
  7. DIAZEPAM [Concomitant]
  8. OMEPRAZOLE [Concomitant]
  9. PREMARIN [Concomitant]

REACTIONS (10)
  - BACK INJURY [None]
  - DRUG DISPENSING ERROR [None]
  - DYSPEPSIA [None]
  - MUSCLE SPASMS [None]
  - MUSCLE STRAIN [None]
  - NERVE COMPRESSION [None]
  - ROAD TRAFFIC ACCIDENT [None]
  - SCIATIC NERVE INJURY [None]
  - TREATMENT NONCOMPLIANCE [None]
  - WRONG TECHNIQUE IN DRUG USAGE PROCESS [None]
